FAERS Safety Report 7275114-1 (Version None)
Quarter: 2011Q1

REPORT INFORMATION
  Report Type: 
  Country: None (occurrence: None)
  Receive Date: 20110204
  Receipt Date: 20110124
  Transmission Date: 20110831
  Serious: Yes (Other)
  Sender: FDA-Public Use
  Company Number: PHHY2011NL05981

PATIENT
  Age: 50 Year
  Sex: Male

DRUGS (5)
  1. CYCLOSPORINE [Suspect]
     Indication: HISTIOCYTOSIS HAEMATOPHAGIC
  2. DEXAMETHASONE [Concomitant]
  3. CASPOFUNGIN [Concomitant]
     Route: 042
  4. AMPHOTERICIN B [Concomitant]
  5. ETOPOSIDE [Concomitant]
     Route: 042

REACTIONS (5)
  - HISTOPLASMOSIS [None]
  - BLOOD LACTATE DEHYDROGENASE INCREASED [None]
  - HISTIOCYTOSIS HAEMATOPHAGIC [None]
  - SERUM FERRITIN INCREASED [None]
  - PANCYTOPENIA [None]
